FAERS Safety Report 10257239 (Version 1)
Quarter: 2014Q2

REPORT INFORMATION
  Report Type: Spontaneous
  Country: US (occurrence: US)
  Receive Date: 20140625
  Receipt Date: 20140625
  Transmission Date: 20141212
  Serious: No
  Sender: FDA-Public Use
  Company Number: US-009507513-1405USA010222

PATIENT
  Age: 35 Year
  Sex: Male

DRUGS (1)
  1. PEGINTRON [Suspect]
     Indication: HEPATITIS
     Dosage: REDIPEN
     Dates: start: 20140501

REACTIONS (6)
  - Eye pruritus [Recovered/Resolved]
  - Influenza like illness [Recovered/Resolved]
  - Eye pruritus [Recovered/Resolved]
  - Influenza like illness [Recovered/Resolved]
  - Eye pruritus [Not Recovered/Not Resolved]
  - Influenza like illness [Recovered/Resolved]
